FAERS Safety Report 5601775-6 (Version None)
Quarter: 2008Q1

REPORT INFORMATION
  Report Type: 
  Country: None (occurrence: None)
  Receive Date: 20080124
  Receipt Date: 20080110
  Transmission Date: 20080703
  Serious: Yes (Disabling)
  Sender: FDA-Public Use
  Company Number: DE-MERCK-0801DEU00058

PATIENT
  Sex: Female

DRUGS (1)
  1. MAXALT [Suspect]
     Indication: MIGRAINE
     Route: 048

REACTIONS (4)
  - DRUG ADMINISTRATION ERROR [None]
  - HEADACHE [None]
  - MUSCLE RIGIDITY [None]
  - MYALGIA [None]
